FAERS Safety Report 8829758 (Version 2)
Quarter: 2012Q4

REPORT INFORMATION
  Report Type: 
  Country: JP (occurrence: JP)
  Receive Date: 20121008
  Receipt Date: 20121022
  Transmission Date: 20130627
  Serious: Yes (Disabling)
  Sender: FDA-Public Use
  Company Number: JP-ALLERGAN-1213686US

PATIENT
  Age: 70 Year
  Sex: Male

DRUGS (3)
  1. LUMIGAN [Suspect]
     Indication: NORMAL TENSION GLAUCOMA
     Dosage: 2 Gtt, qhs
     Route: 047
     Dates: start: 20091208
  2. AZOPT [Suspect]
     Indication: DRUG USE FOR UNKNOWN INDICATION
     Dosage: 2 Gtt, bid
     Route: 047
  3. TIMOPTOL [Suspect]
     Indication: DRUG USE FOR UNKNOWN INDICATION
     Dosage: 2 Gtt, bid
     Route: 047

REACTIONS (3)
  - Visual acuity reduced [Not Recovered/Not Resolved]
  - Punctate keratitis [Not Recovered/Not Resolved]
  - Punctate keratitis [Not Recovered/Not Resolved]
